FAERS Safety Report 5892985-1 (Version None)
Quarter: 2008Q3

REPORT INFORMATION
  Report Type: 
  Country: None (occurrence: None)
  Receive Date: 20080923
  Receipt Date: 20070829
  Transmission Date: 20090109
  Serious: No
  Sender: FDA-Public Use
  Company Number: US-ASTRAZENECA-2007UW14750

PATIENT
  Age: 10828 Day
  Sex: Male
  Weight: 103.6 kg

DRUGS (4)
  1. SEROQUEL [Suspect]
     Indication: ANXIETY
     Route: 048
     Dates: start: 20070601
  2. SEROQUEL [Suspect]
     Indication: BIPOLAR DISORDER
     Route: 048
     Dates: start: 20070601
  3. SEROQUEL [Suspect]
     Indication: DEPRESSION
     Route: 048
     Dates: start: 20070601
  4. LIBRIUM [Concomitant]

REACTIONS (4)
  - FLIGHT OF IDEAS [None]
  - HEADACHE [None]
  - INSOMNIA [None]
  - PANIC ATTACK [None]
